FAERS Safety Report 9501118 (Version 1)
Quarter: 2013Q3

REPORT INFORMATION
  Report Type: Spontaneous
  Country: US (occurrence: US)
  Receive Date: 20130905
  Receipt Date: 20130905
  Transmission Date: 20140515
  Serious: Yes (Other)
  Sender: FDA-Public Use
  Company Number: US-ROCHE-1270513

PATIENT
  Age: 71 Year
  Sex: Male
  Weight: 163 kg

DRUGS (1)
  1. RITUXAN [Suspect]
     Indication: CHRONIC LYMPHOCYTIC LEUKAEMIA
     Route: 042
     Dates: start: 20110519, end: 20111007

REACTIONS (1)
  - Squamous cell carcinoma [Not Recovered/Not Resolved]
